FAERS Safety Report 6745665-4 (Version None)
Quarter: 2010Q2

REPORT INFORMATION
  Report Type: 
  Country: None (occurrence: None)
  Receive Date: 20100528
  Receipt Date: 20100517
  Transmission Date: 20101027
  Serious: Yes (Hospitalization, Other)
  Sender: FDA-Public Use
  Company Number: US-SOLVAY-00210003138

PATIENT
  Age: 84 Year
  Sex: Female
  Weight: 42.727 kg

DRUGS (6)
  1. KLOR-CON [Concomitant]
     Indication: MINERAL SUPPLEMENTATION
     Dosage: DAILY DOSE:  UNKNOWN
     Route: 048
  2. METOPROLOL [Concomitant]
     Indication: HYPERTENSION
     Dosage: DAILY DOSE:  UNKNOWN
     Route: 048
  3. AMLODIPINE [Concomitant]
     Indication: HYPERTENSION
     Dosage: DAILY DOSE:  UNKNOWN
     Route: 048
  4. CREON [Suspect]
     Indication: PANCREATIC INSUFFICIENCY
     Dosage: CREON-10 DAILY DOSE:  UNKNOWN; AS USED: 3 CAPSULES; FREQUENCY: WITH MEALS
     Route: 048
  5. CREON [Suspect]
     Dosage: CREON-10 DAILY DOSE:  UNKNOWN; AS USED: 1 CAPSULE; FREQUENCY: WITH MEALS AND SNACKS
     Route: 048
     Dates: end: 20091001
  6. CREON [Suspect]
     Dosage: CREON DELAYED RELEASE DAILY DOSE:  UNKNOWN; UNIT DOSE:12,000U LIPASE; ASUSED:1CAPSULE; FREQUENCY:WIT
     Route: 048
     Dates: start: 20091001

REACTIONS (8)
  - BACK PAIN [None]
  - EMPHYSEMA [None]
  - IRRITABLE BOWEL SYNDROME [None]
  - LIP EXFOLIATION [None]
  - LIP PAIN [None]
  - LIP SWELLING [None]
  - PNEUMONIA [None]
  - WEIGHT DECREASED [None]
